FAERS Safety Report 14247853 (Version 2)
Quarter: 2017Q4

REPORT INFORMATION
  Report Type: Spontaneous
  Country: JP (occurrence: JP)
  Receive Date: 20171204
  Receipt Date: 20171206
  Transmission Date: 20180321
  Serious: Yes (Other)
  Sender: FDA-Public Use
  Company Number: JP-PFIZER INC-2017467663

PATIENT
  Age: 88 Year
  Sex: Male
  Weight: 52 kg

DRUGS (5)
  1. YOKUKANSAN [Suspect]
     Active Substance: HERBALS
     Dosage: 2.5 G, 3X/DAY
     Route: 048
  2. LENDORMIN [Suspect]
     Active Substance: BROTIZOLAM
     Dosage: 0.25 MG, 1X/DAY
     Route: 048
  3. RISPERIDONE. [Suspect]
     Active Substance: RISPERIDONE
     Dosage: 1 MG, 1X/DAY
     Route: 048
  4. ELIQUIS [Suspect]
     Active Substance: APIXABAN
     Dosage: 2.5 MG, 2X/DAY
     Route: 048
     Dates: end: 20171028
  5. AMLODIPINE BESILATE [Suspect]
     Active Substance: AMLODIPINE BESYLATE
     Dosage: 5 MG, 1X/DAY
     Route: 048

REACTIONS (3)
  - Internal haemorrhage [Recovered/Resolved]
  - Fall [Recovered/Resolved]
  - Buttock injury [Recovered/Resolved]

NARRATIVE: CASE EVENT DATE: 20171028
